FAERS Safety Report 9746287 (Version 1)
Quarter: 2013Q4

REPORT INFORMATION
  Report Type: Spontaneous
  Country: CN (occurrence: None)
  Receive Date: 20131205
  Receipt Date: 20131205
  Transmission Date: 20140711
  Serious: Yes (Life-Threatening, Hospitalization)
  Sender: FDA-Public Use
  Company Number: DAV-AE-LOR-13-09

PATIENT
  Age: 48 Year
  Sex: Female

DRUGS (6)
  1. LORAZEPAM [Suspect]
     Indication: PRODUCT USED FOR UNKNOWN INDICATION
     Dosage: 2 MG GNIGHT, UNKNOWN
  2. ZOLPIDEM [Concomitant]
  3. GLICLAZIDE MR [Concomitant]
  4. METOPROLOL [Concomitant]
  5. CHLORPROMAZINE [Concomitant]
  6. FLUOXETINE [Concomitant]

REACTIONS (5)
  - Stress cardiomyopathy [None]
  - Tremor [None]
  - Grand mal convulsion [None]
  - Metabolic acidosis [None]
  - Drug dependence [None]
